FAERS Safety Report 14651173 (Version 1)
Quarter: 2018Q1

REPORT INFORMATION
  Report Type: Spontaneous
  Country: CA (occurrence: CA)
  Receive Date: 20180316
  Receipt Date: 20180316
  Transmission Date: 20180509
  Serious: Yes (Life-Threatening, Hospitalization)
  Sender: FDA-Public Use
  Company Number: CA-TEVA-2018-CA-868737

PATIENT
  Age: 72 Year
  Sex: Female

DRUGS (5)
  1. CLINDAMYCIN. [Suspect]
     Active Substance: CLINDAMYCIN
     Indication: ARTHROPOD BITE
     Route: 048
  2. ZOPICLONE [Concomitant]
     Active Substance: ZOPICLONE
  3. HYDROCHLOROTHIAZIDE. [Concomitant]
     Active Substance: HYDROCHLOROTHIAZIDE
  4. TRYPTAN [Concomitant]
     Active Substance: TRYPTOPHAN
  5. ARIMIDEX [Concomitant]
     Active Substance: ANASTROZOLE

REACTIONS (8)
  - Depersonalisation/derealisation disorder [Recovering/Resolving]
  - Transfusion [Recovering/Resolving]
  - Diverticulum [Recovering/Resolving]
  - Intestinal haemorrhage [Recovering/Resolving]
  - Abdominal discomfort [Recovering/Resolving]
  - Abdominal pain [Recovering/Resolving]
  - Malaise [Recovering/Resolving]
  - Haematochezia [Recovering/Resolving]
